FAERS Safety Report 7485459-8 (Version None)
Quarter: 2011Q2

REPORT INFORMATION
  Report Type: 
  Country: None (occurrence: None)
  Receive Date: 20110516
  Receipt Date: 20110516
  Transmission Date: 20111010
  Serious: Yes (Other)
  Sender: FDA-Public Use
  Company Number: None

PATIENT
  Sex: Female
  Weight: 69.6 kg

DRUGS (1)
  1. CELLCEPT [Suspect]
     Indication: LIVER TRANSPLANT
     Dosage: 500 MG TWICE PER DAY ORAL
     Route: 048
     Dates: start: 20110321

REACTIONS (2)
  - NAUSEA [None]
  - VOMITING [None]
